FAERS Safety Report 17697297 (Version 2)
Quarter: 2020Q2

REPORT INFORMATION
  Report Type: Spontaneous
  Country: BR (occurrence: BR)
  Receive Date: 20200423
  Receipt Date: 20200504
  Transmission Date: 20200714
  Serious: Yes (Hospitalization, Other)
  Sender: FDA-Public Use
  Company Number: BR-SA-2020SA103372

PATIENT
  Age: 26 Year
  Sex: Male
  Weight: 60 kg

DRUGS (2)
  1. APIDRA [Concomitant]
     Active Substance: INSULIN GLULISINE
     Dosage: 14 IU, BID (LUNCH AND DINNER)
     Route: 065
  2. LANTUS [Suspect]
     Active Substance: INSULIN GLARGINE
     Indication: DIABETES MELLITUS MANAGEMENT
     Dosage: 30 IU, QD
     Route: 065

REACTIONS (4)
  - Malaise [Unknown]
  - Ketoacidosis [Recovered/Resolved]
  - Product storage error [Unknown]
  - Product dose omission [Recovered/Resolved]
